FAERS Safety Report 14291111 (Version 1)
Quarter: 2017Q4

REPORT INFORMATION
  Report Type: Spontaneous
  Country: US (occurrence: US)
  Receive Date: 20171215
  Receipt Date: 20171215
  Transmission Date: 20180321
  Serious: No
  Sender: FDA-Public Use
  Company Number: US-009507513-1712USA007615

PATIENT

DRUGS (3)
  1. PAZOPANIB [Concomitant]
     Active Substance: PAZOPANIB
     Dosage: 400 MG, DAILY
     Route: 048
  2. PAZOPANIB [Concomitant]
     Active Substance: PAZOPANIB
     Indication: SMALL CELL CARCINOMA
     Dosage: 800 MG, DAILY
     Route: 048
  3. TEMODAR [Suspect]
     Active Substance: TEMOZOLOMIDE
     Indication: SMALL CELL CARCINOMA
     Dosage: 150 MG/M2, 7 DAYS ON WITH 7 DAYS OFF ON A 28-DAY CYCLE
     Route: 048

REACTIONS (1)
  - Off label use [Unknown]
